FAERS Safety Report 6125397-6 (Version None)
Quarter: 2009Q1

REPORT INFORMATION
  Report Type: 
  Country: None (occurrence: None)
  Receive Date: 20090319
  Receipt Date: 20090319
  Transmission Date: 20090719
  Serious: Yes (Hospitalization)
  Sender: FDA-Public Use
  Company Number: None

PATIENT
  Age: 78 Year
  Sex: Male

DRUGS (1)
  1. ENOXAPARIN SODIUM [Suspect]
     Dosage: 70 MG BID SQ
     Route: 058
     Dates: start: 20090106

REACTIONS (3)
  - HAEMATOCRIT DECREASED [None]
  - HAEMORRHAGE [None]
  - RETROPERITONEAL HAEMORRHAGE [None]
